FAERS Safety Report 20622444 (Version 2)
Quarter: 2022Q2

REPORT INFORMATION
  Report Type: Spontaneous
  Country: GR (occurrence: GR)
  Receive Date: 20220322
  Receipt Date: 20220407
  Transmission Date: 20220720
  Serious: Yes (Death)
  Sender: FDA-Public Use
  Company Number: GR-PFIZER INC-202200394335

PATIENT
  Age: 61 Year
  Sex: Male

DRUGS (1)
  1. VORICONAZOLE [Suspect]
     Active Substance: VORICONAZOLE
     Indication: Aspergillus infection
     Dosage: UNK
     Dates: start: 2022

REACTIONS (5)
  - Condition aggravated [Fatal]
  - Acute myeloid leukaemia [Fatal]
  - Graft versus host disease [Fatal]
  - Cytomegalovirus infection [Fatal]
  - Oesophagitis [Fatal]

NARRATIVE: CASE EVENT DATE: 20220101
